FAERS Safety Report 21283443 (Version 2)
Quarter: 2022Q3

REPORT INFORMATION
  Report Type: Spontaneous
  Country: CA (occurrence: CA)
  Receive Date: 20220901
  Receipt Date: 20220928
  Transmission Date: 20221027
  Serious: Yes (Other)
  Sender: FDA-Public Use
  Company Number: CA-PFIZER INC-202100951909

PATIENT
  Age: 52 Year
  Sex: Female

DRUGS (1)
  1. XELJANZ [Suspect]
     Active Substance: TOFACITINIB CITRATE
     Indication: Psoriatic arthropathy
     Dosage: 5 MG, 2X/DAY
     Route: 048
     Dates: start: 20201210, end: 2022

REACTIONS (8)
  - Angioedema [Unknown]
  - Laryngospasm [Unknown]
  - Obstructive airways disorder [Unknown]
  - Urticaria [Unknown]
  - Stress [Unknown]
  - Temperature intolerance [Unknown]
  - Impaired work ability [Unknown]
  - Sensitivity to weather change [Unknown]
